FAERS Safety Report 8301825-2 (Version None)
Quarter: 2012Q2

REPORT INFORMATION
  Report Type: 
  Country: None (occurrence: None)
  Receive Date: 20120417
  Receipt Date: 20120402
  Transmission Date: 20120825
  Serious: Yes (Death)
  Sender: FDA-Public Use
  Company Number: B0792578A

PATIENT
  Sex: Female

DRUGS (6)
  1. QUINAGOLIDE HYDROCHLORIDE [Concomitant]
  2. IBUPROFEN [Concomitant]
  3. JASMINE [Concomitant]
  4. SEMISODIUM VALPROATE [Concomitant]
  5. ROSUVASTATIN CALCIUM [Concomitant]
  6. CEFUROXIME SODIUM [Suspect]
     Indication: BREAST ABSCESS
     Dosage: 750 MG / SINGLE DOSE / INTRAMUSCULAR
     Route: 030
     Dates: start: 20061206, end: 20061206

REACTIONS (3)
  - ANAPHYLACTIC SHOCK [None]
  - CARDIOPULMONARY FAILURE [None]
  - ANGIOEDEMA [None]
